FAERS Safety Report 4710822-5 (Version None)
Quarter: 2005Q3

REPORT INFORMATION
  Report Type: 
  Country: None (occurrence: None)
  Receive Date: 20050708
  Receipt Date: 20050623
  Transmission Date: 20060218
  Serious: Yes (Hospitalization)
  Sender: FDA-Public Use
  Company Number: TRP_0159_2005

PATIENT
  Age: 53 Year
  Sex: Female

DRUGS (22)
  1. RIBASPHERE [Suspect]
     Indication: HEPATITIS C
     Dosage: DF PO
     Route: 048
     Dates: start: 20050510, end: 20050605
  2. PEG-INTRON [Suspect]
     Indication: HEPATITIS C
     Dosage: DF SC
     Route: 058
     Dates: start: 20050510, end: 20050605
  3. ACTOS [Concomitant]
  4. ASPIRIN [Concomitant]
  5. CALCIUM GLUCONATE [Concomitant]
  6. COMBIVENT [Concomitant]
  7. DOXEPIN HCL [Concomitant]
  8. FERROUS ASPARTATE [Concomitant]
  9. FLONASE [Concomitant]
  10. FLOVENT [Concomitant]
  11. HYDROCHLOROTHIAZIDE [Concomitant]
  12. ACETAMINOPHEN AND HYDROCODONE BITARTRATE [Concomitant]
  13. LEXAPRO [Concomitant]
  14. LISINOPRIL [Concomitant]
  15. METFORMIN [Concomitant]
  16. PRAVACHOL [Concomitant]
  17. PROTONIX [Concomitant]
  18. SALICYLIC ACID [Concomitant]
  19. GEODON [Concomitant]
  20. COMBIVENT AEROSOL SOLUTION [Concomitant]
  21. FLOVENT AEROSOL SOLUTION [Concomitant]
  22. HYDROCODONE BITARTRATE WITH ACETAMINOPHEN [Concomitant]

REACTIONS (2)
  - ANGER [None]
  - STRESS [None]
